FAERS Safety Report 7354236-0 (Version None)
Quarter: 2011Q1

REPORT INFORMATION
  Report Type: 
  Country: None (occurrence: None)
  Receive Date: 20110316
  Receipt Date: 20110308
  Transmission Date: 20110831
  Serious: Yes (Hospitalization)
  Sender: FDA-Public Use
  Company Number: US-BIOGENIDEC-2011BI008893

PATIENT
  Age: 27 Year
  Sex: Female

DRUGS (3)
  1. TYSABRI [Suspect]
     Indication: MULTIPLE SCLEROSIS
     Route: 042
     Dates: start: 20100807
  2. TYSABRI [Suspect]
     Route: 042
     Dates: start: 20090415, end: 20100327
  3. TYSABRI [Suspect]
     Route: 042
     Dates: start: 20071213, end: 20071213

REACTIONS (1)
  - MULTIPLE SCLEROSIS [None]
